FAERS Safety Report 10987472 (Version 2)
Quarter: 2015Q2

REPORT INFORMATION
  Report Type: Spontaneous
  Country: US (occurrence: US)
  Receive Date: 20150404
  Receipt Date: 20150525
  Transmission Date: 20150821
  Serious: Yes (Hospitalization)
  Sender: FDA-Public Use
  Company Number: US-JNJFOC-20141020517

PATIENT
  Age: 45 Year
  Sex: Female

DRUGS (1)
  1. REMICADE [Suspect]
     Active Substance: INFLIXIMAB
     Indication: RHEUMATOID ARTHRITIS
     Route: 042

REACTIONS (6)
  - Rheumatoid arthritis [Recovered/Resolved]
  - Vomiting [Unknown]
  - Anxiety [Unknown]
  - Chest discomfort [Unknown]
  - Infusion related reaction [Unknown]
  - Nausea [Unknown]

NARRATIVE: CASE EVENT DATE: 2014
